FAERS Safety Report 15952651 (Version 1)
Quarter: 2019Q1

REPORT INFORMATION
  Report Type: Spontaneous
  Country: US (occurrence: US)
  Receive Date: 20190211
  Receipt Date: 20190211
  Transmission Date: 20190417
  Serious: No
  Sender: FDA-Public Use
  Company Number: US-009507513-1901USA005256

PATIENT
  Age: 76 Year
  Sex: Female

DRUGS (1)
  1. STEGLATRO [Suspect]
     Active Substance: ERTUGLIFLOZIN PIDOLATE
     Indication: DIABETES MELLITUS
     Dosage: 5 MILLIGRAM, QD
     Route: 048
     Dates: start: 20181216, end: 20190113

REACTIONS (3)
  - Dysuria [Recovered/Resolved]
  - Pollakiuria [Recovered/Resolved]
  - Urine abnormality [Recovered/Resolved]

NARRATIVE: CASE EVENT DATE: 20181216
